FAERS Safety Report 13967150 (Version 1)
Quarter: 2017Q3

REPORT INFORMATION
  Report Type: Report from Study
  Country: None (occurrence: US)
  Receive Date: 20170914
  Receipt Date: 20170914
  Transmission Date: 20171128
  Serious: Yes (Hospitalization, Other)
  Sender: FDA-Public Use
  Company Number: US-ABBVIE-17K-163-2097917-00

PATIENT
  Sex: Male
  Weight: 117.13 kg

DRUGS (10)
  1. MEGARED [Concomitant]
     Indication: PRODUCT USED FOR UNKNOWN INDICATION
  2. HALOBETASOL [Concomitant]
     Active Substance: HALOBETASOL PROPIONATE
     Indication: PSORIASIS
  3. FOLIC ACID. [Concomitant]
     Active Substance: FOLIC ACID
     Indication: PRODUCT USED FOR UNKNOWN INDICATION
  4. VITAMIN D [Concomitant]
     Active Substance: CHOLECALCIFEROL
     Indication: PRODUCT USED FOR UNKNOWN INDICATION
  5. DILANTIN [Concomitant]
     Active Substance: PHENYTOIN
     Indication: PETIT MAL EPILEPSY
  6. HUMIRA [Suspect]
     Active Substance: ADALIMUMAB
     Indication: PSORIASIS
     Route: 058
     Dates: end: 20170729
  7. HUMIRA [Suspect]
     Active Substance: ADALIMUMAB
     Route: 058
     Dates: start: 20170907
  8. DEPAKOTE [Concomitant]
     Active Substance: DIVALPROEX SODIUM
     Indication: PETIT MAL EPILEPSY
  9. LASIX [Concomitant]
     Active Substance: FUROSEMIDE
     Indication: PRODUCT USED FOR UNKNOWN INDICATION
  10. VITAMIN B COMPLEX [Concomitant]
     Active Substance: CYANOCOBALAMIN\DEXPANTHENOL\NIACINAMIDE\PYRIDOXINE HYDROCHLORIDE\RIBOFLAVIN 5^-PHOSPHATE SODIUM\THIAMINE HYDROCHLORIDE\VITAMIN B COMPLEX
     Indication: PRODUCT USED FOR UNKNOWN INDICATION

REACTIONS (16)
  - Pulmonary embolism [Recovered/Resolved]
  - Joint dislocation [Recovering/Resolving]
  - Gait disturbance [Recovered/Resolved]
  - Loss of consciousness [Recovered/Resolved]
  - Fall [Recovered/Resolved]
  - Skin lesion [Unknown]
  - Constipation [Recovered/Resolved]
  - Limb asymmetry [Recovered/Resolved]
  - Cyanosis [Recovered/Resolved]
  - Pain [Recovering/Resolving]
  - Petit mal epilepsy [Recovered/Resolved]
  - Ankle fracture [Recovered/Resolved]
  - Post procedural complication [Recovered/Resolved]
  - Thrombosis [Recovered/Resolved]
  - Psoriasis [Recovering/Resolving]
  - Stress fracture [Recovering/Resolving]

NARRATIVE: CASE EVENT DATE: 2013
